FAERS Safety Report 9611597 (Version 2)
Quarter: 2013Q4

REPORT INFORMATION
  Report Type: Report from Study
  Country: FR (occurrence: FR)
  Receive Date: 20131010
  Receipt Date: 20131010
  Transmission Date: 20140711
  Serious: Yes (Hospitalization)
  Sender: FDA-Public Use
  Company Number: FR-ROCHE-1284144

PATIENT
  Age: 66 Year
  Sex: Female
  Weight: 72.5 kg

DRUGS (6)
  1. MYCOPHENOLATE MOFETIL [Suspect]
     Indication: PROPHYLAXIS AGAINST TRANSPLANT REJECTION
     Route: 048
     Dates: start: 20120726, end: 20120918
  2. ADVAGRAF [Suspect]
     Indication: RENAL TRANSPLANT
     Route: 048
     Dates: start: 20120919
  3. IMUREL [Suspect]
     Indication: RENAL TRANSPLANT
     Route: 048
     Dates: start: 20120919
  4. MIMPARA [Concomitant]
     Route: 048
     Dates: start: 20130409, end: 20130823
  5. MIMPARA [Concomitant]
     Route: 048
     Dates: start: 20130824
  6. AVLOCARDYL [Concomitant]
     Route: 048
     Dates: start: 20121217

REACTIONS (1)
  - Transplant rejection [Unknown]
